FAERS Safety Report 6040049-9 (Version None)
Quarter: 2009Q1

REPORT INFORMATION
  Report Type: 
  Country: None (occurrence: None)
  Receive Date: 20090116
  Receipt Date: 20071127
  Transmission Date: 20090719
  Serious: No
  Sender: FDA-Public Use
  Company Number: US-BRISTOL-MYERS SQUIBB COMPANY-13996111

PATIENT
  Age: 35 Year
  Sex: Female
  Weight: 109 kg

DRUGS (6)
  1. ABILIFY [Suspect]
     Indication: BIPOLAR DISORDER
     Dosage: PREVIOUSLY 20MG DAILY.
     Route: 048
  2. LEXAPRO [Concomitant]
  3. LIPITOR [Concomitant]
  4. VALTREX [Concomitant]
  5. ORTHO-NOVUM [Concomitant]
  6. SEROQUEL [Concomitant]

REACTIONS (2)
  - BLOOD CHOLESTEROL INCREASED [None]
  - WEIGHT INCREASED [None]
